FAERS Safety Report 16414042 (Version 1)
Quarter: 2019Q2

REPORT INFORMATION
  Report Type: Spontaneous
  Country: IT (occurrence: IT)
  Receive Date: 20190611
  Receipt Date: 20190611
  Transmission Date: 20190711
  Serious: Yes (Other)
  Sender: FDA-Public Use
  Company Number: IT-AUROBINDO-AUR-APL-2019-033654

PATIENT

DRUGS (23)
  1. DEXAMETHASONE. [Suspect]
     Active Substance: DEXAMETHASONE
     Indication: PLASMA CELL MYELOMA
     Dosage: UNK, FOUR CYCLES
     Route: 065
     Dates: start: 20080701, end: 20080923
  2. ETOPOSIDE. [Suspect]
     Active Substance: ETOPOSIDE
     Indication: PLASMA CELL MYELOMA
     Dosage: UNK, 2 CYCLES
     Route: 065
     Dates: start: 20100616, end: 20100803
  3. PREDNISONE. [Suspect]
     Active Substance: PREDNISONE
     Dosage: UNK, 6 CYCLES
     Route: 065
     Dates: start: 20090115, end: 20090604
  4. CYCLOPHOSPHAMIDE. [Suspect]
     Active Substance: CYCLOPHOSPHAMIDE
     Indication: PLASMA CELL MYELOMA
     Dosage: UNK, 2 CYCLES
     Route: 065
     Dates: start: 20100616, end: 20100803
  5. LAMIVUDINE. [Concomitant]
     Active Substance: LAMIVUDINE
     Indication: PRODUCT USED FOR UNKNOWN INDICATION
     Dosage: UNK
     Route: 065
  6. BORTEZOMIB. [Suspect]
     Active Substance: BORTEZOMIB
     Dosage: UNK, 4 CYCLES
     Route: 065
     Dates: start: 20100115, end: 20100406
  7. BENDAMUSTINE [Suspect]
     Active Substance: BENDAMUSTINE
     Indication: PLASMA CELL MYELOMA
     Dosage: UNK, 5 CYCLES
     Route: 065
     Dates: start: 20140115, end: 20140520
  8. PREDNISONE. [Suspect]
     Active Substance: PREDNISONE
     Indication: PLASMA CELL MYELOMA
     Dosage: UNK, 1 CYCLE
     Route: 065
     Dates: start: 20140625
  9. MELPHALAN. [Suspect]
     Active Substance: MELPHALAN
     Indication: PLASMA CELL MYELOMA
     Dosage: UNK, 6 CYCLES
     Route: 065
     Dates: start: 20090115, end: 20090604
  10. DOXORUBICIN [Suspect]
     Active Substance: DOXORUBICIN
     Indication: PLASMA CELL MYELOMA
     Dosage: UNK, 4 CYCLES
     Route: 065
     Dates: start: 20100115, end: 20100406
  11. DEXAMETHASONE. [Suspect]
     Active Substance: DEXAMETHASONE
     Dosage: UNK, THREE CYCLES
     Route: 065
     Dates: start: 20091030, end: 20091211
  12. DEXAMETHASONE. [Suspect]
     Active Substance: DEXAMETHASONE
     Dosage: UNK, 7 CYCLES
     Route: 065
     Dates: start: 20151115, end: 20160225
  13. LENALIDOMIDE [Suspect]
     Active Substance: LENALIDOMIDE
     Indication: PLASMA CELL MYELOMA
     Dosage: UNK, 6 CYCLES
     Route: 065
     Dates: start: 20090115, end: 20090604
  14. LENALIDOMIDE [Suspect]
     Active Substance: LENALIDOMIDE
     Dosage: UNK, 4 CYCLES
     Route: 065
     Dates: start: 20080701, end: 20080923
  15. CYCLOPHOSPHAMIDE. [Suspect]
     Active Substance: CYCLOPHOSPHAMIDE
     Dosage: UNK, SINGLE CYCLE
     Route: 065
     Dates: start: 20081121
  16. DEXAMETHASONE. [Suspect]
     Active Substance: DEXAMETHASONE
     Dosage: UNK, 2 CYCLES
     Route: 065
     Dates: start: 20100616, end: 20100803
  17. DEXAMETHASONE. [Suspect]
     Active Substance: DEXAMETHASONE
     Dosage: UNK, 4 CYCLES
     Route: 065
     Dates: start: 20100115, end: 20100406
  18. POMALIDOMIDE [Suspect]
     Active Substance: POMALIDOMIDE
     Indication: PLASMA CELL MYELOMA
     Dosage: UNK, 7 CYCLES
     Route: 065
     Dates: start: 20151115, end: 20160225
  19. CARFILZOMIB [Suspect]
     Active Substance: CARFILZOMIB
     Indication: PLASMA CELL MYELOMA
     Dosage: UNK, 7 CYCLES
     Route: 065
     Dates: start: 20151115, end: 20160225
  20. MELPHALAN. [Suspect]
     Active Substance: MELPHALAN
     Dosage: UNK, 1 CYCLE
     Route: 065
     Dates: start: 20140625
  21. DOXORUBICIN [Suspect]
     Active Substance: DOXORUBICIN
     Dosage: UNK, 2 CYCLES
     Route: 065
     Dates: start: 20100616, end: 20100803
  22. BORTEZOMIB. [Suspect]
     Active Substance: BORTEZOMIB
     Indication: PLASMA CELL MYELOMA
     Dosage: UNK, 2 CYCLES
     Route: 065
     Dates: start: 20100616, end: 20100803
  23. BORTEZOMIB. [Suspect]
     Active Substance: BORTEZOMIB
     Dosage: UNK, 3 CYCLES
     Route: 065
     Dates: start: 20091030, end: 20091211

REACTIONS (3)
  - Malignant neoplasm progression [Unknown]
  - Hepatitis B reactivation [Not Recovered/Not Resolved]
  - Plasma cell myeloma [Unknown]
